FAERS Safety Report 11562979 (Version 1)
Quarter: 2015Q3

REPORT INFORMATION
  Report Type: Spontaneous
  Country: GB (occurrence: GB)
  Receive Date: 20150928
  Receipt Date: 20150928
  Transmission Date: 20151125
  Serious: Yes (Death)
  Sender: FDA-Public Use
  Company Number: GB-AKORN PHARMACEUTICALS-2015AKN00532

PATIENT

DRUGS (1)
  1. CLINDAMYCIN [Suspect]
     Active Substance: CLINDAMYCIN\CLINDAMYCIN PHOSPHATE
     Indication: ENDOCARDITIS PROPHYLAXIS
     Dosage: 600 MG, UNK
     Route: 048

REACTIONS (1)
  - Peritonitis [Fatal]
